FAERS Safety Report 5761739-9 (Version None)
Quarter: 2008Q2

REPORT INFORMATION
  Report Type: 
  Country: None (occurrence: None)
  Receive Date: 20080602
  Receipt Date: 20080516
  Transmission Date: 20081010
  Serious: Yes (Other)
  Sender: FDA-Public Use
  Company Number: POMP-1000171

PATIENT
  Age: 48 Year
  Sex: Female
  Weight: 75.2 kg

DRUGS (5)
  1. MYOZYME [Suspect]
     Indication: GLYCOGEN STORAGE DISEASE TYPE II
     Dosage: 20 MG/KG, Q2W, INTRAVENOUS
     Route: 042
     Dates: start: 20080228, end: 20080516
  2. DIPHENHYDRAMINE HCL [Concomitant]
  3. SYNTHROID [Concomitant]
  4. VESICARE [Concomitant]
  5. ZOLOFT [Concomitant]

REACTIONS (7)
  - CARDIAC DISORDER [None]
  - CHEST DISCOMFORT [None]
  - CONTUSION [None]
  - DYSPNOEA [None]
  - HYPERSENSITIVITY [None]
  - INFUSION RELATED REACTION [None]
  - SEPTAL PANNICULITIS [None]
